FAERS Safety Report 20626818 (Version 2)
Quarter: 2022Q2

REPORT INFORMATION
  Report Type: Report from Study
  Country: US (occurrence: US)
  Receive Date: 20220323
  Receipt Date: 20220408
  Transmission Date: 20220721
  Serious: Yes (Hospitalization)
  Sender: FDA-Public Use
  Company Number: US-ETON PHARMACEUTICALS, INC-2022ETO000038

PATIENT

DRUGS (1)
  1. ALKINDI SPRINKLE [Suspect]
     Active Substance: HYDROCORTISONE
     Indication: Adrenal insufficiency
     Dosage: 1 MG, TID
     Route: 048
     Dates: start: 20220224, end: 20220226

REACTIONS (8)
  - Ileus [Recovered/Resolved]
  - Constipation [Recovered/Resolved]
  - Hypophagia [Recovered/Resolved]
  - Urine output decreased [Recovered/Resolved]
  - Flatulence [Recovered/Resolved]
  - Gastric dilatation [Recovered/Resolved]
  - Crying [Recovered/Resolved]
  - Mood altered [Recovered/Resolved]

NARRATIVE: CASE EVENT DATE: 20220101
